FAERS Safety Report 5004788-0 (Version None)
Quarter: 2006Q2

REPORT INFORMATION
  Report Type: 
  Country: None (occurrence: None)
  Receive Date: 20060517
  Receipt Date: 20050112
  Transmission Date: 20061013
  Serious: Yes (Hospitalization)
  Sender: FDA-Public Use
  Company Number: US-MERCK-0501USA02327

PATIENT
  Age: 72 Year
  Sex: Female
  Weight: 77 kg

DRUGS (6)
  1. VIOXX [Suspect]
     Indication: ARTHRITIS
     Route: 048
     Dates: start: 20010801, end: 20040401
  2. AVAPRO [Concomitant]
     Route: 065
  3. MAXZIDE [Concomitant]
     Route: 065
  4. BAYCOL [Concomitant]
     Route: 065
  5. [THERAPY UNSPECIFIED] [Concomitant]
     Route: 065
  6. ASPIRIN [Concomitant]
     Route: 065

REACTIONS (18)
  - ASTHENIA [None]
  - BLISTER [None]
  - CEREBROVASCULAR ACCIDENT [None]
  - CHEST PAIN [None]
  - DUODENAL ULCER PERFORATION [None]
  - FAECAL INCONTINENCE [None]
  - INSOMNIA [None]
  - JOINT SWELLING [None]
  - MICTURITION DISORDER [None]
  - ONYCHOMYCOSIS [None]
  - PERITONITIS [None]
  - PNEUMOPERITONEUM [None]
  - RESPIRATORY FAILURE [None]
  - SHOULDER PAIN [None]
  - SKIN LESION [None]
  - TOOTH ABSCESS [None]
  - TREMOR [None]
  - URINARY TRACT INFECTION [None]
